FAERS Safety Report 5861186-5 (Version None)
Quarter: 2008Q3

REPORT INFORMATION
  Report Type: 
  Country: None (occurrence: None)
  Receive Date: 20080827
  Receipt Date: 20080501
  Transmission Date: 20090109
  Serious: No
  Sender: FDA-Public Use
  Company Number: US-ABBOTT-08P-163-0442880-00

PATIENT
  Sex: Male
  Weight: 90.8 kg

DRUGS (5)
  1. NIASPAN [Suspect]
     Indication: BLOOD CHOLESTEROL INCREASED
     Route: 048
     Dates: start: 20060901
  2. NIASPAN [Suspect]
     Route: 048
  3. NIASPAN [Suspect]
     Route: 048
     Dates: start: 20070110, end: 20070601
  4. NIASPAN [Suspect]
     Route: 048
     Dates: start: 20070601
  5. VICODIN [Concomitant]
     Indication: BACK PAIN
     Route: 048

REACTIONS (4)
  - DRUG INEFFECTIVE [None]
  - FLUSHING [None]
  - HIGH DENSITY LIPOPROTEIN DECREASED [None]
  - RASH MACULAR [None]
